FAERS Safety Report 23532461 (Version 1)
Quarter: 2024Q1

REPORT INFORMATION
  Report Type: Spontaneous
  Country: US (occurrence: US)
  Receive Date: 20240216
  Receipt Date: 20240216
  Transmission Date: 20240409
  Serious: Yes (Hospitalization, Other)
  Sender: FDA-Public Use
  Company Number: US-JNJFOC-20240216932

PATIENT
  Age: 68 Year
  Sex: Female

DRUGS (16)
  1. PALIPERIDONE [Suspect]
     Active Substance: PALIPERIDONE
     Indication: Schizophrenia
     Route: 065
  2. INGREZZA [Suspect]
     Active Substance: VALBENAZINE
     Indication: Tardive dyskinesia
     Route: 048
     Dates: start: 20230810
  3. INGREZZA [Suspect]
     Active Substance: VALBENAZINE
     Route: 048
     Dates: start: 20230912
  4. BENZTROPINE [Concomitant]
     Active Substance: BENZTROPINE
  5. THORAZINE [Concomitant]
     Active Substance: CHLORPROMAZINE
  6. VITAMIN B12 [Concomitant]
     Active Substance: CYANOCOBALAMIN
  7. VITAMIN D2 [Concomitant]
     Active Substance: ERGOCALCIFEROL
  8. LEVOTHYROXINE [Concomitant]
     Active Substance: LEVOTHYROXINE\LEVOTHYROXINE SODIUM
  9. LORAZEPAM [Concomitant]
     Active Substance: LORAZEPAM
  10. MAGNESIUM OXIDE [Concomitant]
     Active Substance: MAGNESIUM OXIDE
  11. MELATONIN [Concomitant]
     Active Substance: MELATONIN
  12. REMERON [Concomitant]
     Active Substance: MIRTAZAPINE
  13. INDERAL [Concomitant]
     Active Substance: PROPRANOLOL HYDROCHLORIDE
  14. SEROQUEL [Concomitant]
     Active Substance: QUETIAPINE FUMARATE
  15. MIRALAX [Concomitant]
     Active Substance: POLYETHYLENE GLYCOL 3350
  16. SENOKOT [Concomitant]
     Active Substance: SENNOSIDES

REACTIONS (16)
  - Respiratory arrest [Unknown]
  - Pulse absent [Unknown]
  - Syncope [Unknown]
  - Tardive dyskinesia [Recovered/Resolved]
  - Schizophrenia [Recovered/Resolved]
  - COVID-19 [Recovered/Resolved]
  - Hospitalisation [Unknown]
  - Parkinsonism [Recovering/Resolving]
  - Akathisia [Recovering/Resolving]
  - Fall [Unknown]
  - Anxiety [Unknown]
  - Depression [Unknown]
  - Myocardial ischaemia [Unknown]
  - Left atrial enlargement [Unknown]
  - Urinary tract infection [Unknown]
  - Asthenia [Unknown]

NARRATIVE: CASE EVENT DATE: 20230816
